FAERS Safety Report 10439868 (Version 1)
Quarter: 2014Q3

REPORT INFORMATION
  Report Type: Spontaneous
  Country: US (occurrence: US)
  Receive Date: 20140908
  Receipt Date: 20140908
  Transmission Date: 20150326
  Serious: No
  Sender: FDA-Public Use
  Company Number: US-BRISTOL-MYERS SQUIBB COMPANY-20666707

PATIENT
  Age: 35 Year
  Sex: Female

DRUGS (5)
  1. ABILIFY [Suspect]
     Active Substance: ARIPIPRAZOLE
     Dosage: THAT WAS INCREASED TO 15 MG TWICE A DAY
  2. ATIVAN [Concomitant]
     Active Substance: LORAZEPAM
  3. LITHIUM [Concomitant]
     Active Substance: LITHIUM CARBONATE
  4. LYRICA [Concomitant]
     Active Substance: PREGABALIN
  5. AMLODIPINE [Concomitant]
     Active Substance: AMLODIPINE BESYLATE

REACTIONS (2)
  - Agitation [Unknown]
  - Insomnia [Unknown]
